FAERS Safety Report 7511828-3 (Version None)
Quarter: 2011Q2

REPORT INFORMATION
  Report Type: 
  Country: None (occurrence: None)
  Receive Date: 20110531
  Receipt Date: 20110524
  Transmission Date: 20111010
  Serious: Yes (Other)
  Sender: FDA-Public Use
  Company Number: ES-PFIZER INC-2011111157

PATIENT
  Age: 61 Year
  Sex: Male

DRUGS (6)
  1. CYCLOPHOSPHAMIDE [Concomitant]
     Indication: TRANSPLANT
     Dosage: UNK
     Dates: start: 20110226, end: 20110227
  2. ACYCLOVIR [Concomitant]
     Indication: CYTOMEGALOVIRUS INFECTION
     Dosage: UNK
     Dates: start: 20110224
  3. BUSULFAN [Concomitant]
     Indication: TRANSPLANT
     Dosage: UNK
     Dates: start: 20110222, end: 20110225
  4. SEPTRIN FORTE [Concomitant]
     Indication: PROPHYLAXIS
     Dosage: 800 MG, 1X/DAY
     Route: 048
     Dates: start: 20110223
  5. PHENYTOIN SODIUM [Suspect]
     Indication: CONVULSION
     Dosage: 400 MG, DAILY
     Route: 048
     Dates: start: 20110221, end: 20110226
  6. CYCLOSPORINE [Concomitant]
     Indication: TRANSPLANT
     Dosage: UNK
     Dates: start: 20110227, end: 20110227

REACTIONS (4)
  - HEPATITIS CHOLESTATIC [None]
  - BLOOD ALKALINE PHOSPHATASE INCREASED [None]
  - BLOOD BILIRUBIN INCREASED [None]
  - GAMMA-GLUTAMYLTRANSFERASE INCREASED [None]
